FAERS Safety Report 17869000 (Version 1)
Quarter: 2020Q2

REPORT INFORMATION
  Report Type: Report from Study
  Country: FR (occurrence: FR)
  Receive Date: 20200608
  Receipt Date: 20200608
  Transmission Date: 20200714
  Serious: Yes (Hospitalization)
  Sender: FDA-Public Use
  Company Number: FR-BRISTOL-MYERS SQUIBB COMPANY-BMS-2020-041551

PATIENT
  Age: 40 Year
  Sex: Female

DRUGS (3)
  1. PNEUMOCOCCAL CONJUGATE VACCINE [Suspect]
     Active Substance: PNEUMOCOCCAL VACCINE POLYVALENT
     Indication: RHEUMATOID ARTHRITIS
     Dosage: 0.5 MILLILITER
     Route: 058
     Dates: start: 20191113
  2. ABATACEPT [Suspect]
     Active Substance: ABATACEPT
     Indication: RHEUMATOID ARTHRITIS
     Dosage: 125 MILLIGRAM
     Route: 058
     Dates: start: 20191113
  3. PNEUMOCOCCAL POLYSACCHARIDE VACCINE [Suspect]
     Active Substance: PNEUMOCOCCAL VACCINE POLYVALENT
     Indication: RHEUMATOID ARTHRITIS
     Dosage: 0.5 MILLILITER
     Route: 058
     Dates: start: 20200113

REACTIONS (1)
  - Salpingectomy [Recovered/Resolved]

NARRATIVE: CASE EVENT DATE: 20200212
